FAERS Safety Report 24691676 (Version 2)
Quarter: 2025Q1

REPORT INFORMATION
  Report Type: Spontaneous
  Country: GR (occurrence: GR)
  Receive Date: 20241203
  Receipt Date: 20250124
  Transmission Date: 20250409
  Serious: No
  Sender: PFIZER
  Company Number: GR-PFIZER INC-PV202400153209

PATIENT
  Age: 13 Year
  Sex: Male
  Weight: 50 kg

DRUGS (3)
  1. GENOTROPIN [Suspect]
     Active Substance: SOMATROPIN
     Indication: Growth hormone deficiency
     Dosage: 9 MG, WEEKLY
     Route: 058
     Dates: start: 201411
  2. THYROX [Concomitant]
  3. HYDROCORTISONE [Concomitant]
     Active Substance: HYDROCORTISONE

REACTIONS (3)
  - Device breakage [Unknown]
  - Device physical property issue [Unknown]
  - Drug dose omission by device [Unknown]

NARRATIVE: CASE EVENT DATE: 20241121
